FAERS Safety Report 9964308 (Version 1)
Quarter: 2014Q1

REPORT INFORMATION
  Report Type: Spontaneous
  Country: US (occurrence: US)
  Receive Date: 20140305
  Receipt Date: 20140305
  Transmission Date: 20141002
  Serious: No
  Sender: FDA-Public Use
  Company Number: US-B.I. PHARMACEUTICALS,INC./RIDGEFIELD-2014-BI-08580BP

PATIENT
  Age: 63 Year
  Sex: Female

DRUGS (1)
  1. MIRAPEX [Suspect]
     Indication: RESTLESS LEGS SYNDROME
     Route: 065
     Dates: start: 201312, end: 201312

REACTIONS (2)
  - Insomnia [Recovered/Resolved]
  - Drug ineffective [Recovered/Resolved]
